FAERS Safety Report 13075816 (Version 1)
Quarter: 2016Q4

REPORT INFORMATION
  Report Type: Spontaneous
  Country: US (occurrence: US)
  Receive Date: 20161230
  Receipt Date: 20161230
  Transmission Date: 20170207
  Serious: No
  Sender: FDA-Public Use
  Company Number: US-LNK INTERNATIONAL, INC.-1061413

PATIENT
  Age: 80 Year
  Sex: Male

DRUGS (6)
  1. ROPINIROLE. [Concomitant]
     Active Substance: ROPINIROLE
  2. ANTI-DIARRHEAL [Suspect]
     Active Substance: LOPERAMIDE HYDROCHLORIDE
     Indication: DIARRHOEA
  3. METOPROLOL. [Concomitant]
     Active Substance: METOPROLOL
  4. ESCITALOPRAM [Concomitant]
     Active Substance: ESCITALOPRAM OXALATE
  5. WARFARIN [Concomitant]
     Active Substance: WARFARIN
  6. OFEV [Concomitant]
     Active Substance: NINTEDANIB

REACTIONS (2)
  - Faecaloma [None]
  - Constipation [None]
